FAERS Safety Report 5317708-6 (Version None)
Quarter: 2007Q2

REPORT INFORMATION
  Report Type: 
  Country: None (occurrence: None)
  Receive Date: 20070507
  Receipt Date: 20070424
  Transmission Date: 20071010
  Serious: Yes (Death, Hospitalization)
  Sender: FDA-Public Use
  Company Number: NSADSS2002021817

PATIENT
  Age: 39 Year
  Sex: Female

DRUGS (16)
  1. REMICADE [Suspect]
     Route: 041
  2. REMICADE [Suspect]
     Route: 041
  3. REMICADE [Suspect]
     Route: 041
  4. REMICADE [Suspect]
     Route: 041
  5. REMICADE [Suspect]
     Indication: RHEUMATOID ARTHRITIS
     Route: 041
  6. METHOTREXATE [Suspect]
     Indication: RHEUMATOID ARTHRITIS
  7. PREDNISOLONE [Concomitant]
  8. BURANA [Concomitant]
  9. FOLVITE [Concomitant]
  10. FOLVITE [Concomitant]
  11. LOSEC [Concomitant]
  12. CALCICHEW-D3 [Concomitant]
  13. DIFORMIN RETARD [Concomitant]
  14. DISPERIN [Concomitant]
  15. EMCONCOR [Concomitant]
  16. LIPITOR [Concomitant]

REACTIONS (4)
  - CHEST PAIN [None]
  - PERICARDITIS [None]
  - SEPTIC SHOCK [None]
  - TONSILLITIS [None]
